FAERS Safety Report 23367615 (Version 1)
Quarter: 2024Q1

REPORT INFORMATION
  Report Type: Spontaneous
  Country: US (occurrence: US)
  Receive Date: 20240104
  Receipt Date: 20240104
  Transmission Date: 20240410
  Serious: Yes (Other)
  Sender: FDA-Public Use
  Company Number: US-GILEAD-2024-0657272

PATIENT
  Age: 46 Year
  Sex: Male
  Weight: 78.2 kg

DRUGS (5)
  1. YESCARTA [Suspect]
     Active Substance: AXICABTAGENE CILOLEUCEL
     Indication: Diffuse large B-cell lymphoma
     Dosage: UNK
     Route: 042
     Dates: start: 20231102, end: 20231102
  2. KEPPRA [Concomitant]
     Active Substance: LEVETIRACETAM
  3. ACYCLOVIR [Concomitant]
     Active Substance: ACYCLOVIR
  4. ATOVAQUONE [Concomitant]
     Active Substance: ATOVAQUONE
  5. SULFAMETHOXAZOLE AND TRIMETHOPRIM [Concomitant]
     Active Substance: SULFAMETHOXAZOLE\TRIMETHOPRIM

REACTIONS (2)
  - Cytokine release syndrome [Recovered/Resolved]
  - Neutropenia [Unknown]

NARRATIVE: CASE EVENT DATE: 20231108
